FAERS Safety Report 7681738-X (Version None)
Quarter: 2011Q3

REPORT INFORMATION
  Report Type: 
  Country: None (occurrence: None)
  Receive Date: 20110812
  Receipt Date: 20110729
  Transmission Date: 20111222
  Serious: Yes (Hospitalization)
  Sender: FDA-Public Use
  Company Number: GB-ARROW GEN-2011-12006

PATIENT
  Age: 67 Year
  Sex: Male

DRUGS (3)
  1. AZATHIOPRINE [Suspect]
     Indication: MYASTHENIA GRAVIS
     Route: 065
  2. PYRIDOSTIGMINE BROMIDE [Concomitant]
     Indication: MYASTHENIA GRAVIS
     Dosage: UNK
     Route: 065
  3. PREDNISOLONE [Suspect]
     Indication: MYASTHENIA GRAVIS
     Dosage: UNK
     Route: 065

REACTIONS (14)
  - C-REACTIVE PROTEIN INCREASED [None]
  - LEUKOCYTOSIS [None]
  - GASTROINTESTINAL DISORDER [None]
  - ACUTE RESPIRATORY DISTRESS SYNDROME [None]
  - HEADACHE [None]
  - PETECHIAE [None]
  - PRODUCTIVE COUGH [None]
  - ILEUS PARALYTIC [None]
  - KLEBSIELLA BACTERAEMIA [None]
  - CONFUSIONAL STATE [None]
  - PNEUMONIA [None]
  - MENINGITIS ASEPTIC [None]
  - SEPSIS [None]
  - STRONGYLOIDIASIS [None]
